FAERS Safety Report 15216184 (Version 1)
Quarter: 2018Q3

REPORT INFORMATION
  Report Type: Spontaneous
  Country: ES (occurrence: ES)
  Receive Date: 20180730
  Receipt Date: 20180730
  Transmission Date: 20181010
  Serious: Yes (Other)
  Sender: FDA-Public Use
  Company Number: PHHY2018ES054349

PATIENT
  Age: 32 Year
  Sex: Male

DRUGS (9)
  1. ADALIMUMAB [Suspect]
     Active Substance: ADALIMUMAB
     Indication: IRIDOCYCLITIS
  2. SALAZOPYRIN [Suspect]
     Active Substance: SULFASALAZINE
     Indication: ANKYLOSING SPONDYLITIS
     Dosage: UNK
     Route: 065
  3. METHOTREXATE. [Suspect]
     Active Substance: METHOTREXATE
     Indication: ANKYLOSING SPONDYLITIS
     Dosage: UNK
     Route: 065
  4. METHOTREXATE. [Suspect]
     Active Substance: METHOTREXATE
     Indication: IRIDOCYCLITIS
  5. METHOTREXATE. [Suspect]
     Active Substance: METHOTREXATE
     Indication: CHRONIC DISEASE
  6. SALAZOPYRIN [Suspect]
     Active Substance: SULFASALAZINE
     Indication: IRIDOCYCLITIS
  7. ADALIMUMAB [Suspect]
     Active Substance: ADALIMUMAB
     Indication: CHRONIC DISEASE
     Dosage: UNK
     Route: 065
  8. ADALIMUMAB [Suspect]
     Active Substance: ADALIMUMAB
     Indication: ANKYLOSING SPONDYLITIS
  9. SALAZOPYRIN [Suspect]
     Active Substance: SULFASALAZINE
     Indication: CHRONIC DISEASE

REACTIONS (1)
  - Drug resistance [Unknown]
